FAERS Safety Report 8170406-6 (Version None)
Quarter: 2012Q1

REPORT INFORMATION
  Report Type: 
  Country: None (occurrence: None)
  Receive Date: 20120228
  Receipt Date: 20120214
  Transmission Date: 20120608
  Serious: Yes (Other)
  Sender: FDA-Public Use
  Company Number: US-ELI_LILLY_AND_COMPANY-US200910007333

PATIENT
  Sex: Female

DRUGS (13)
  1. ZYPREXA [Suspect]
     Dosage: 2.5 MG, UNKNOWN
  2. COGENTIN [Concomitant]
  3. TOPROL-XL [Concomitant]
  4. ZYPREXA [Suspect]
     Dosage: 3.75 MG, BID
  5. ZYPREXA [Suspect]
     Dosage: 2.5 MG, BID
  6. PROZAC [Concomitant]
     Dosage: 20 DF, QD
  7. CLONAZEPAM [Concomitant]
     Dosage: 2.5 MG, BID
  8. RISPERDAL [Concomitant]
  9. ZESTRIL [Concomitant]
  10. ZYPREXA [Suspect]
     Dosage: 1 D/F, UNK
  11. PAXIL [Concomitant]
  12. ZYPREXA [Suspect]
     Dosage: 10 MG, UNKNOWN
  13. HYDROCHLOROTHIAZIDE [Concomitant]

REACTIONS (20)
  - PULMONARY HYPERTENSION [None]
  - BACTERIAL INFECTION [None]
  - CORONARY ARTERY DISEASE [None]
  - PARONYCHIA [None]
  - GASTROENTERITIS [None]
  - TYPE 2 DIABETES MELLITUS [None]
  - BLOOD TRIGLYCERIDES INCREASED [None]
  - FURUNCLE [None]
  - NEUTROPHIL COUNT DECREASED [None]
  - GAMMA-GLUTAMYLTRANSFERASE INCREASED [None]
  - CONJUNCTIVITIS [None]
  - URINARY TRACT INFECTION [None]
  - NASOPHARYNGITIS [None]
  - ASPARTATE AMINOTRANSFERASE INCREASED [None]
  - WEIGHT INCREASED [None]
  - UPPER RESPIRATORY TRACT INFECTION [None]
  - TINEA CRURIS [None]
  - WHITE BLOOD CELL COUNT DECREASED [None]
  - ALANINE AMINOTRANSFERASE INCREASED [None]
  - PANCREATITIS VIRAL [None]
